FAERS Safety Report 5528606-7 (Version None)
Quarter: 2007Q4

REPORT INFORMATION
  Report Type: 
  Country: None (occurrence: None)
  Receive Date: 20071121
  Receipt Date: 20071108
  Transmission Date: 20080405
  Serious: Yes (Hospitalization)
  Sender: FDA-Public Use
  Company Number: B0495877A

PATIENT
  Age: 58 Year
  Sex: Female

DRUGS (1)
  1. PAROXETINE HCL [Suspect]
     Indication: DEPRESSION
     Dosage: SEE DOSAGE TEXT

REACTIONS (9)
  - ANOREXIA [None]
  - DECREASED INTEREST [None]
  - DEHYDRATION [None]
  - FATIGUE [None]
  - FEELING ABNORMAL [None]
  - HYPONATRAEMIA [None]
  - MALAISE [None]
  - SLEEP DISORDER [None]
  - WEIGHT DECREASED [None]
